FAERS Safety Report 15258661 (Version 1)
Quarter: 2018Q3

REPORT INFORMATION
  Report Type: Spontaneous
  Country: GB (occurrence: GB)
  Receive Date: 20180809
  Receipt Date: 20180809
  Transmission Date: 20181010
  Serious: Yes (Hospitalization, Other)
  Sender: FDA-Public Use
  Company Number: GB-TEVA-2018-GB-936661

PATIENT
  Age: 48 Year
  Sex: Male

DRUGS (7)
  1. DIAZEPAM. [Suspect]
     Active Substance: DIAZEPAM
     Indication: NEURALGIA
     Dosage: REGULAR DOSE: 5MG PRN
     Route: 065
  2. PARACETAMOL [Concomitant]
     Active Substance: ACETAMINOPHEN
     Indication: OSTEOARTHRITIS
     Route: 065
  3. ZAPONEX [Suspect]
     Active Substance: CLOZAPINE
     Indication: SCHIZOPHRENIA
     Route: 048
     Dates: start: 20160915
  4. ZAPONEX [Suspect]
     Active Substance: CLOZAPINE
     Indication: SCHIZOPHRENIA
     Route: 048
  5. MIRTAZAPINE. [Suspect]
     Active Substance: MIRTAZAPINE
     Indication: DEPRESSION
     Dosage: 45 MILLIGRAM DAILY;
     Route: 065
  6. LAXIDO [Concomitant]
     Active Substance: POLYETHYLENE GLYCOL 3350\POTASSIUM CHLORIDE\SODIUM BICARBONATE\SODIUM CHLORIDE
     Indication: CONSTIPATION
     Route: 048
  7. AMITRIPTYLINE [Suspect]
     Active Substance: AMITRIPTYLINE
     Indication: FIBROMYALGIA
     Dosage: REGULAR DOSE: 25?50 MG PRN
     Route: 065

REACTIONS (3)
  - Influenza [Recovering/Resolving]
  - Suicide attempt [Recovered/Resolved]
  - Intentional overdose [Recovering/Resolving]

NARRATIVE: CASE EVENT DATE: 20180127
